FAERS Safety Report 8997277 (Version 2)
Quarter: 2013Q1

REPORT INFORMATION
  Report Type: Spontaneous
  Country: US (occurrence: US)
  Receive Date: 20130104
  Receipt Date: 20130123
  Transmission Date: 20140127
  Serious: No
  Sender: FDA-Public Use
  Company Number: US-PFIZER INC-2013001398

PATIENT
  Age: 49 Year
  Sex: Female
  Weight: 66.21 kg

DRUGS (3)
  1. ADVIL [Suspect]
     Indication: ARTHRALGIA
     Dosage: 3 TABLETS (600 MG) ONCE A DAY AS NEEDED
     Route: 048
     Dates: start: 201210
  2. NEXIUM [Concomitant]
     Indication: GASTROOESOPHAGEAL REFLUX DISEASE
     Dosage: 40 MG, ONCE A DAY
     Route: 048
  3. ALIGN [Concomitant]
     Indication: IRRITABLE BOWEL SYNDROME
     Dosage: 1 CAPSULE, DAILY

REACTIONS (4)
  - Poor quality drug administered [Unknown]
  - Incorrect dose administered [Unknown]
  - Vitamin D decreased [Unknown]
  - Tablet physical issue [Unknown]
